FAERS Safety Report 9207812 (Version 1)
Quarter: 2013Q1

REPORT INFORMATION
  Report Type: Spontaneous
  Country: US (occurrence: None)
  Receive Date: 20120719
  Receipt Date: 20120719
  Transmission Date: 20140127
  Serious: Yes (Life-Threatening)
  Sender: FDA-Public Use
  Company Number: 2012-00747

PATIENT
  Age: 60 Year
  Sex: Female

DRUGS (1)
  1. CEFADROXIL [Suspect]
     Indication: UPPER RESPIRATORY TRACT INFECTION
     Dosage: (500 MG, 2 IN 1 DAY)
     Route: 048

REACTIONS (1)
  - Angioedema [None]
